FAERS Safety Report 5390517-8 (Version None)
Quarter: 2007Q3

REPORT INFORMATION
  Report Type: 
  Country: None (occurrence: None)
  Receive Date: 20070718
  Receipt Date: 20070119
  Transmission Date: 20080115
  Serious: No
  Sender: FDA-Public Use
  Company Number: US-KINGPHARMUSA00001-K200700065

PATIENT

DRUGS (5)
  1. LEVOXYL [Suspect]
     Dosage: 100 MCG, QD
     Route: 048
     Dates: start: 20070101, end: 20070117
  2. GLIPIZIDE [Concomitant]
     Indication: DIABETES MELLITUS
  3. ACTOS [Concomitant]
     Indication: DIABETES MELLITUS
  4. DIOVAN     /01319601/ [Concomitant]
     Indication: HYPERTENSION
  5. PUMP [Concomitant]
     Indication: ASTHMA

REACTIONS (4)
  - DIARRHOEA [None]
  - NAUSEA [None]
  - PALPITATIONS [None]
  - VOMITING [None]
